FAERS Safety Report 14472837 (Version 3)
Quarter: 2024Q3

REPORT INFORMATION
  Report Type: Spontaneous
  Country: JP (occurrence: JP)
  Receive Date: 20180201
  Receipt Date: 20240701
  Transmission Date: 20241017
  Serious: Yes (Death, Hospitalization, Other)
  Sender: AMGEN
  Company Number: JP-TAKEDA-2018TJP002710AA

PATIENT
  Age: 78 Year
  Sex: Male
  Weight: 41.9 kg

DRUGS (7)
  1. VECTIBIX [Suspect]
     Active Substance: PANITUMUMAB
     Indication: Colon cancer
     Dosage: UNK
     Route: 050
  2. FLUOROURACIL [Suspect]
     Active Substance: FLUOROURACIL
     Indication: Colon cancer
     Dosage: UNK
     Route: 042
  3. FLUOROURACIL [Suspect]
     Active Substance: FLUOROURACIL
     Dosage: UNK
     Route: 040
  4. LEVOLEUCOVORIN CALCIUM [Suspect]
     Active Substance: LEVOLEUCOVORIN CALCIUM
     Indication: Adenocarcinoma of colon
     Dosage: UNK
     Route: 041
  5. LEVOLEUCOVORIN CALCIUM [Suspect]
     Active Substance: LEVOLEUCOVORIN CALCIUM
     Indication: Colon cancer
  6. IRINOTECAN HYDROCHLORIDE [Suspect]
     Active Substance: IRINOTECAN HYDROCHLORIDE
     Indication: Colon cancer
     Dosage: UNK
     Route: 041
  7. OXALIPLATIN [Suspect]
     Active Substance: OXALIPLATIN
     Indication: Colon cancer
     Dosage: UNK
     Route: 065

REACTIONS (2)
  - Pulmonary tuberculosis [Fatal]
  - Colon cancer [Fatal]
